FAERS Safety Report 6773331-8 (Version None)
Quarter: 2010Q2

REPORT INFORMATION
  Report Type: 
  Country: None (occurrence: None)
  Receive Date: 20100614
  Receipt Date: 20100603
  Transmission Date: 20101027
  Serious: Yes (Hospitalization)
  Sender: FDA-Public Use
  Company Number: DSA_43227_2010

PATIENT
  Sex: Female

DRUGS (1)
  1. XENAZINE [Suspect]
     Indication: TARDIVE DYSKINESIA
     Dosage: 12.5 MG BID ORAL
     Route: 048
     Dates: start: 20100504

REACTIONS (2)
  - FALL [None]
  - UPPER LIMB FRACTURE [None]
